FAERS Safety Report 4742343-8 (Version None)
Quarter: 2005Q3

REPORT INFORMATION
  Report Type: 
  Country: None (occurrence: None)
  Receive Date: 20050811
  Receipt Date: 20050408
  Transmission Date: 20060218
  Serious: No
  Sender: FDA-Public Use
  Company Number: US-GLAXOSMITHKLINE-A0553415A

PATIENT
  Age: 18 Year
  Sex: Male

DRUGS (1)
  1. PAXIL CR [Suspect]
     Indication: DRUG USE FOR UNKNOWN INDICATION
     Dosage: 25MG PER DAY
     Route: 048
     Dates: start: 20041201, end: 20050101

REACTIONS (5)
  - ANGER [None]
  - CRYING [None]
  - DISSOCIATION [None]
  - DISTURBANCE IN ATTENTION [None]
  - OBSESSIVE-COMPULSIVE DISORDER [None]
